FAERS Safety Report 16115331 (Version 1)
Quarter: 2019Q1

REPORT INFORMATION
  Report Type: Spontaneous
  Country: US (occurrence: US)
  Receive Date: 20190325
  Receipt Date: 20190325
  Transmission Date: 20190418
  Serious: No
  Sender: FDA-Public Use
  Company Number: US-PFIZER INC-2019125565

PATIENT
  Age: 70 Year
  Sex: Female

DRUGS (1)
  1. IBRANCE [Suspect]
     Active Substance: PALBOCICLIB
     Indication: BREAST CANCER METASTATIC
     Dosage: 100 MG, CYCLIC (D1-D21 EVERY 28 DAYS)
     Route: 048
     Dates: start: 20190219

REACTIONS (5)
  - Asthenia [Unknown]
  - Nausea [Recovered/Resolved]
  - Pain [Unknown]
  - White blood cell count decreased [Unknown]
  - Platelet count decreased [Unknown]
